FAERS Safety Report 13098670 (Version 1)
Quarter: 2017Q1

REPORT INFORMATION
  Report Type: Spontaneous
  Country: AU (occurrence: AU)
  Receive Date: 20170109
  Receipt Date: 20170109
  Transmission Date: 20170428
  Serious: Yes (Other)
  Sender: FDA-Public Use
  Company Number: AU-BAUSCH-BL-2016-032580

PATIENT
  Age: 60 Year
  Sex: Male

DRUGS (7)
  1. IPILIMUMAB [Concomitant]
     Active Substance: IPILIMUMAB
     Indication: METASTATIC MALIGNANT MELANOMA
     Dosage: 3 MG/KG
     Route: 042
  2. PREDNISOLONE. [Suspect]
     Active Substance: PREDNISOLONE
     Indication: IMMUNE SYSTEM DISORDER
     Dosage: 1 MG/KG FOR 10 DAYS WITH A WEANING?SCHEDULE FOR A TOTAL OF 6 WEEKS TREATMENT, 75 MG/KG (1 MG/KG) WIT
     Route: 048
  3. PEMBROLIZUMAB. [Concomitant]
     Active Substance: PEMBROLIZUMAB
     Indication: METASTATIC MALIGNANT MELANOMA
     Dosage: 2 MG/KG, 150 MG FOR 3 DAYS
     Route: 042
  4. INSULIN [Concomitant]
     Active Substance: INSULIN NOS
     Indication: BLOOD GLUCOSE
  5. PREDNISOLONE. [Suspect]
     Active Substance: PREDNISOLONE
     Dosage: WHEN THE PREDNISOLONE DOSE REACHED 25 MG, IT WAS FURTHER WEANED TO 10 MG FOR A TOTAL OF 6 WEEKS TREA
     Route: 048
  6. TRIMETHOPRIM+SULFAMETHOXAZOLE [Concomitant]
     Active Substance: SULFAMETHOXAZOLE\TRIMETHOPRIM
     Indication: ANTIFUNGAL PROPHYLAXIS
     Dosage: 160+800 MG
     Route: 048
  7. PREDNISOLONE. [Suspect]
     Active Substance: PREDNISOLONE
     Indication: TYPE 1 DIABETES MELLITUS
     Dosage: 2 MG/KG FOR 3 DAYS
     Route: 048

REACTIONS (1)
  - Drug ineffective [Unknown]
